FAERS Safety Report 6193803-7 (Version None)
Quarter: 2009Q2

REPORT INFORMATION
  Report Type: 
  Country: None (occurrence: None)
  Receive Date: 20090513
  Receipt Date: 20090505
  Transmission Date: 20091009
  Serious: Yes (Hospitalization)
  Sender: FDA-Public Use
  Company Number: WAES 0905USA00486

PATIENT
  Age: 7 Year
  Sex: Male
  Weight: 26.7622 kg

DRUGS (2)
  1. TIMOPTIC [Suspect]
     Indication: DEVELOPMENTAL GLAUCOMA
     Dosage: 2 DRPS/BID/OPHT
     Route: 047
     Dates: start: 20090210, end: 20090211
  2. LATANOPROST [Suspect]

REACTIONS (3)
  - DEVELOPMENTAL GLAUCOMA [None]
  - DISEASE PROGRESSION [None]
  - EYE HAEMORRHAGE [None]
